FAERS Safety Report 16666893 (Version 4)
Quarter: 2019Q3

REPORT INFORMATION
  Report Type: Spontaneous
  Country: JP (occurrence: JP)
  Receive Date: 20190805
  Receipt Date: 20190921
  Transmission Date: 20191004
  Serious: Yes (Hospitalization, Other)
  Sender: FDA-Public Use
  Company Number: JP-AMGEN-JPNSP2019122737

PATIENT
  Age: 92 Year
  Sex: Female

DRUGS (2)
  1. ALFACALCIDOL [Concomitant]
     Active Substance: ALFACALCIDOL
     Indication: BLOOD CALCIUM
     Dosage: 1 MICROGRAM, QD
     Route: 065
     Dates: start: 20190523
  2. EVENITY [Suspect]
     Active Substance: ROMOSOZUMAB-AQQG
     Indication: OSTEOPOROSIS
     Dosage: 210 MILLIGRAM, QMO
     Route: 058
     Dates: start: 20190425, end: 20190627

REACTIONS (3)
  - Blood potassium increased [Recovered/Resolved]
  - Pancreatitis [Recovering/Resolving]
  - Bile duct stone [Unknown]

NARRATIVE: CASE EVENT DATE: 2019
